FAERS Safety Report 7989094-4 (Version None)
Quarter: 2011Q4

REPORT INFORMATION
  Report Type: 
  Country: None (occurrence: None)
  Receive Date: 20111007
  Receipt Date: 20110816
  Transmission Date: 20120403
  Serious: No
  Sender: FDA-Public Use
  Company Number: 2011HGS-002473

PATIENT
  Age: 56 Year
  Sex: Female
  Weight: 77.1115 kg

DRUGS (17)
  1. ACETAMINOPHEN [Concomitant]
  2. BENLYSTA [Suspect]
     Indication: SYSTEMIC LUPUS ERYTHEMATOSUS
     Dosage: 1 IN 13 D, INTRAVENOUS DRIP
     Route: 041
     Dates: start: 20110726, end: 20110808
  3. COUMADIN [Concomitant]
  4. FIBERCON (POLYCARBOPHIL CALCIUM) [Concomitant]
  5. PROVENTIL [Concomitant]
  6. ADVAIR (SERETIDE MITE) (FLUTICASONE PROPIONATE, SALMETEROL XINAFOATE) [Concomitant]
  7. LASIX (LASIX) (FUROSEMIDE, FUROSEMIDE SODIUM) [Concomitant]
  8. VITAMIN D [Concomitant]
  9. EPIPEN [Concomitant]
  10. PREDNISONE [Concomitant]
  11. PLAQUENIL [Concomitant]
  12. CLONAZEPAM [Concomitant]
  13. PROPRANOLOL [Concomitant]
  14. SINGULAIR [Concomitant]
  15. XOPENEX [Concomitant]
  16. NITROGLYCERIN [Concomitant]
  17. DEXILANT [Concomitant]

REACTIONS (23)
  - BLOOD PRESSURE DECREASED [None]
  - HYPERTENSION [None]
  - TREMOR [None]
  - ASTHENIA [None]
  - FALL [None]
  - LOSS OF CONTROL OF LEGS [None]
  - PAIN IN EXTREMITY [None]
  - DIZZINESS [None]
  - POLLAKIURIA [None]
  - BLOOD PRESSURE INCREASED [None]
  - INJECTION SITE ERYTHEMA [None]
  - HEADACHE [None]
  - WHEEZING [None]
  - FEELING ABNORMAL [None]
  - OCULAR HYPERAEMIA [None]
  - SKIN IRRITATION [None]
  - DYSPNOEA [None]
  - CHEST PAIN [None]
  - VISION BLURRED [None]
  - BALANCE DISORDER [None]
  - ABDOMINAL PAIN UPPER [None]
  - FATIGUE [None]
  - PAIN [None]
